FAERS Safety Report 8538334-1 (Version None)
Quarter: 2012Q3

REPORT INFORMATION
  Report Type: 
  Country: None (occurrence: None)
  Receive Date: 20120726
  Receipt Date: 20120720
  Transmission Date: 20120928
  Serious: No
  Sender: FDA-Public Use
  Company Number: US-009507513-1207USA008376

PATIENT

DRUGS (3)
  1. COZAAR [Suspect]
     Dosage: 100 MG, UNK
     Route: 048
  2. COZAAR [Suspect]
     Indication: HYPERTENSION
     Dosage: 100 MG, QD
     Route: 048
  3. COZAAR [Suspect]
     Dosage: 50 MG, QD
     Route: 048

REACTIONS (2)
  - BLOOD PRESSURE INCREASED [None]
  - HYPOTENSION [None]
